FAERS Safety Report 23136687 (Version 1)
Quarter: 2023Q4

REPORT INFORMATION
  Report Type: Spontaneous
  Country: US (occurrence: US)
  Receive Date: 20231102
  Receipt Date: 20231102
  Transmission Date: 20240110
  Serious: Yes (Hospitalization, Other)
  Sender: FDA-Public Use
  Company Number: US-SPC-000325

PATIENT
  Age: 60 Year
  Sex: Male

DRUGS (2)
  1. CLINDAMYCIN [Suspect]
     Active Substance: CLINDAMYCIN
     Indication: Arthropod bite
     Dosage: TAKEN ON DAYS 7 TO 14
     Route: 065
  2. CLINDAMYCIN [Suspect]
     Active Substance: CLINDAMYCIN
     Indication: Arthropod bite
     Route: 065

REACTIONS (3)
  - Mental status changes [Recovered/Resolved]
  - Sepsis [Recovered/Resolved]
  - Drug ineffective for unapproved indication [Unknown]
